FAERS Safety Report 12188132 (Version 1)
Quarter: 2016Q1

REPORT INFORMATION
  Report Type: Spontaneous
  Country: RU (occurrence: RU)
  Receive Date: 20160317
  Receipt Date: 20160317
  Transmission Date: 20160526
  Serious: Yes (Hospitalization, Other)
  Sender: FDA-Public Use
  Company Number: RU-GLAXOSMITHKLINE-RU2016GSK037432

PATIENT
  Sex: Male

DRUGS (4)
  1. COMBIVIR [Suspect]
     Active Substance: LAMIVUDINE\ZIDOVUDINE
     Indication: HIV INFECTION
  2. STOCRIN (EFAVIRENZ) [Suspect]
     Active Substance: EFAVIRENZ
     Indication: HIV INFECTION
  3. KIVEXA [Suspect]
     Active Substance: ABACAVIR SULFATE\LAMIVUDINE
     Indication: HIV INFECTION
  4. INTELENCE [Suspect]
     Active Substance: ETRAVIRINE
     Indication: HIV INFECTION

REACTIONS (16)
  - Abnormal faeces [Recovered/Resolved]
  - Poisoning [Recovered/Resolved]
  - Irritability [Recovered/Resolved]
  - Dizziness [Recovered/Resolved]
  - Biliary dyskinesia [Recovered/Resolved]
  - Influenza like illness [Recovered/Resolved]
  - Irritable bowel syndrome [Recovered/Resolved]
  - Nausea [Recovered/Resolved]
  - Back pain [Unknown]
  - Fatigue [Recovered/Resolved]
  - Daydreaming [Recovered/Resolved]
  - Flatulence [Recovered/Resolved]
  - Constipation [Recovered/Resolved]
  - Autonomic nervous system imbalance [Unknown]
  - Chromaturia [Recovered/Resolved]
  - Oral disorder [Recovered/Resolved]
